FAERS Safety Report 22116091 (Version 6)
Quarter: 2023Q2

REPORT INFORMATION
  Report Type: Spontaneous
  Country: US (occurrence: US)
  Receive Date: 20230320
  Receipt Date: 20230503
  Transmission Date: 20230721
  Serious: Yes (Hospitalization)
  Sender: FDA-Public Use
  Company Number: US-VERTEX PHARMACEUTICALS-2023-003474

PATIENT
  Age: 69 Year
  Sex: Female
  Weight: 72 kg

DRUGS (12)
  1. TRIKAFTA [Suspect]
     Active Substance: ELEXACAFTOR\IVACAFTOR\TEZACAFTOR
     Indication: Cystic fibrosis
     Dosage: 2 ORANGE TABS,AM/1 BLUE TAB,PM
     Route: 048
     Dates: start: 20191107, end: 20210609
  2. TRIKAFTA [Suspect]
     Active Substance: ELEXACAFTOR\IVACAFTOR\TEZACAFTOR
     Dosage: FLIPPED DOSE AM/PM
     Route: 048
     Dates: start: 20210609
  3. TRIKAFTA [Suspect]
     Active Substance: ELEXACAFTOR\IVACAFTOR\TEZACAFTOR
     Dosage: 2 ORANGE TABLETS AM AND 1 BLUE TABLET PM
     Route: 048
  4. CEFDINIR [Suspect]
     Active Substance: CEFDINIR
     Indication: Infective pulmonary exacerbation of cystic fibrosis
     Dosage: UNK
     Route: 048
     Dates: start: 20230208, end: 2023
  5. CAYSTON [Concomitant]
     Active Substance: AZTREONAM
  6. CIPROFLOXACIN [Concomitant]
     Active Substance: CIPROFLOXACIN
  7. SODIUM CHLORIDE [Concomitant]
     Active Substance: SODIUM CHLORIDE
  8. CODEINE [Concomitant]
     Active Substance: CODEINE
  9. COLISTIN [Concomitant]
     Active Substance: COLISTIN
  10. MEROPENEM [Concomitant]
     Active Substance: MEROPENEM
  11. VANCOMYCIN [Concomitant]
     Active Substance: VANCOMYCIN
  12. PENICILLIN [Concomitant]
     Active Substance: PENICILLIN

REACTIONS (4)
  - Pericarditis [Recovering/Resolving]
  - Infective pulmonary exacerbation of cystic fibrosis [Recovered/Resolved]
  - Haemoptysis [Recovered/Resolved]
  - Drug eruption [Not Recovered/Not Resolved]

NARRATIVE: CASE EVENT DATE: 20230208
